FAERS Safety Report 5863689 (Version 2)
Quarter: 2015Q1

REPORT INFORMATION
  Report Type: Spontaneous
  Country: JP (occurrence: JP)
  Receive Date: 20030924
  Receipt Date: 20150330
  Transmission Date: 20150721
  Serious: Yes (Life-Threatening)
  Sender: FDA-Public Use
  Company Number: PHBS2003JP06762

PATIENT
  Age: 34 Year
  Sex: Female
  Weight: 70 kg

DRUGS (12)
  1. ATROPINE SULFATE. [Suspect]
     Active Substance: ATROPINE SULFATE
     Route: 065
  2. TOFRANIL [Suspect]
     Active Substance: IMIPRAMINE HYDROCHLORIDE
     Indication: DEPRESSION
     Route: 048
     Dates: start: 20030629, end: 20030629
  3. AMOXAN [Suspect]
     Active Substance: AMOXAPINE
     Dosage: 270 TABLETS, ONCE/SINGLE
     Route: 048
     Dates: start: 20030629, end: 20030629
  4. TOFRANIL [Suspect]
     Active Substance: IMIPRAMINE HYDROCHLORIDE
     Indication: PSYCHOTIC DISORDER
     Dosage: 442 TABLETS, ONCE/SINGLE
     Route: 048
     Dates: start: 20030629, end: 20030629
  5. LUVOX [Suspect]
     Active Substance: FLUVOXAMINE MALEATE
     Dosage: 120 TABLETS, ONCE/SINGLE
     Route: 048
     Dates: start: 20030629, end: 20030629
  6. DEPROMEL [Suspect]
     Active Substance: FLUVOXAMINE
     Dosage: 6 TABLETS, ONCE/SINGLE
     Route: 048
     Dates: start: 20030629, end: 20030629
  7. TRAZODONE [Suspect]
     Active Substance: TRAZODONE HYDROCHLORIDE
     Dosage: 48 TABLETS, ONCE/SINGLE
     Route: 048
     Dates: start: 20030629, end: 20030629
  8. DEPAS [Suspect]
     Active Substance: ETIZOLAM
     Dosage: 116 DF, ONCE/SINGLE
     Route: 048
     Dates: start: 20030629, end: 20030629
  9. DEPAS [Suspect]
     Active Substance: ETIZOLAM
     Dosage: 68 TABLETS, ONCE/SINGLE
     Route: 048
     Dates: start: 20030629, end: 20030629
  10. TRYPTANOL [Suspect]
     Active Substance: AMITRIPTYLINE
     Dosage: 30 TABLETS, ONCE/SINGLE
     Route: 048
     Dates: start: 20030629, end: 20030629
  11. DOGMATYL [Suspect]
     Active Substance: SULPIRIDE
     Dosage: 16 TABLETS, ONCE/SINGLE
     Route: 048
     Dates: start: 20030629, end: 20030629
  12. PURSENNID [Concomitant]
     Active Substance: SENNOSIDES A AND B
     Dosage: 10 DF, ONCE/SINGLE
     Route: 048

REACTIONS (18)
  - Seizure [Recovered/Resolved]
  - Atelectasis [Recovered/Resolved]
  - Bradycardia [Recovered/Resolved]
  - Cardio-respiratory arrest [Recovered/Resolved]
  - Respiratory failure [Recovered/Resolved]
  - Bundle branch block right [Recovered/Resolved]
  - Atrioventricular block first degree [Recovered/Resolved]
  - Circulatory collapse [Recovered/Resolved]
  - Pupillary reflex impaired [Recovered/Resolved]
  - Cardiac arrest [Recovered/Resolved]
  - Blood pressure decreased [Recovered/Resolved]
  - Respiratory acidosis [Recovered/Resolved]
  - Altered state of consciousness [Recovered/Resolved]
  - Coma [Recovered/Resolved]
  - Chest X-ray abnormal [Recovered/Resolved]
  - Conduction disorder [Recovered/Resolved]
  - Cardiotoxicity [None]
  - Intentional overdose [Recovered/Resolved]

NARRATIVE: CASE EVENT DATE: 20030629
